FAERS Safety Report 12311705 (Version 1)
Quarter: 2016Q2

REPORT INFORMATION
  Report Type: Spontaneous
  Country: US (occurrence: US)
  Receive Date: 20160427
  Receipt Date: 20160427
  Transmission Date: 20160815
  Serious: Yes (Death, Hospitalization)
  Sender: FDA-Public Use
  Company Number: US-FRESENIUS KABI-FK201602157

PATIENT
  Age: 36 Year
  Sex: Female

DRUGS (1)
  1. PROTAMINE SULFATE (MANUFACTURER UNKNOWN) [Suspect]
     Active Substance: PROTAMINE SULFATE
     Indication: PROCOAGULANT THERAPY
     Route: 065

REACTIONS (4)
  - Pulmonary hypertension [Fatal]
  - Multiple organ dysfunction syndrome [Fatal]
  - Right ventricular failure [Fatal]
  - Adverse drug reaction [Unknown]
